FAERS Safety Report 5993068-2 (Version None)
Quarter: 2008Q4

REPORT INFORMATION
  Report Type: 
  Country: None (occurrence: None)
  Receive Date: 20081212
  Receipt Date: 20081209
  Transmission Date: 20090506
  Serious: Yes (Hospitalization)
  Sender: FDA-Public Use
  Company Number: US-BRISTOL-MYERS SQUIBB COMPANY-14437321

PATIENT
  Age: 64 Year
  Sex: Female
  Weight: 76 kg

DRUGS (8)
  1. PACLITAXEL [Suspect]
     Indication: NON-SMALL CELL LUNG CANCER
     Dosage: TDD = 384MG, RECENT INFUSION ON 09MAR07, ONGOING.
     Route: 042
     Dates: start: 20060725, end: 20060725
  2. CARBOPLATIN [Suspect]
     Indication: NON-SMALL CELL LUNG CANCER
     Dosage: 1 DOSAGE FORM=AUC6, TDD=837MG. RECENT INFUSION ON 09MAR07, ONGOING
     Route: 042
     Dates: start: 20060725, end: 20060725
  3. KYTRIL [Concomitant]
     Route: 048
     Dates: start: 20060719
  4. COMPAZINE [Concomitant]
     Route: 048
     Dates: start: 20060719
  5. PAXIL [Concomitant]
     Route: 048
     Dates: start: 20060719
  6. OXYCODONE HCL [Concomitant]
     Route: 048
     Dates: start: 20060719
  7. DECADRON [Concomitant]
     Route: 048
     Dates: start: 20060725
  8. ATIVAN [Concomitant]
     Route: 048
     Dates: start: 20060719

REACTIONS (3)
  - CHEST PAIN [None]
  - NAUSEA [None]
  - VOMITING [None]
